FAERS Safety Report 4833232-9 (Version None)
Quarter: 2005Q4

REPORT INFORMATION
  Report Type: 
  Country: None (occurrence: None)
  Receive Date: 20051117
  Receipt Date: 20051102
  Transmission Date: 20060501
  Serious: Yes (Other)
  Sender: FDA-Public Use
  Company Number: CA_051109015

PATIENT
  Age: 19 Year
  Sex: Female
  Weight: 64 kg

DRUGS (2)
  1. STRATTERA [Suspect]
     Indication: DEPRESSION
     Dosage: 25 MG/1 DAY
  2. PROZAC [Suspect]
     Indication: DEPRESSION
     Dosage: 60 MG/1 DAY

REACTIONS (3)
  - EMOTIONAL DISORDER [None]
  - OFF LABEL USE [None]
  - SUICIDAL IDEATION [None]
